FAERS Safety Report 8164159-5 (Version None)
Quarter: 2012Q1

REPORT INFORMATION
  Report Type: 
  Country: None (occurrence: None)
  Receive Date: 20120221
  Receipt Date: 20120203
  Transmission Date: 20120608
  Serious: Yes (Other)
  Sender: FDA-Public Use
  Company Number: GER/GRE/12/0023009

PATIENT
  Age: 35 Year
  Sex: Male

DRUGS (3)
  1. SINTROM [Concomitant]
  2. ASPIRIN [Concomitant]
  3. CLOPIDOGREL [Suspect]
     Indication: PRODUCT USED FOR UNKNOWN INDICATION

REACTIONS (3)
  - SINGLE PHOTON EMISSION COMPUTERISED TOMOGRAM ABNORMAL [None]
  - MYOCARDIAL ISCHAEMIA [None]
  - EJECTION FRACTION DECREASED [None]
